FAERS Safety Report 10764268 (Version 3)
Quarter: 2015Q1

REPORT INFORMATION
  Report Type: Report from Study
  Country: PL (occurrence: PL)
  Receive Date: 20150205
  Receipt Date: 20150310
  Transmission Date: 20150721
  Serious: Yes (Hospitalization)
  Sender: FDA-Public Use
  Company Number: PL-AMGEN-POLCT2015009639

PATIENT
  Age: 57 Year
  Sex: Male
  Weight: 68 kg

DRUGS (9)
  1. DENOSUMAB [Suspect]
     Active Substance: DENOSUMAB
     Indication: PLASMA CELL MYELOMA
     Dosage: 120 MG, UNK
     Route: 065
     Dates: start: 20140626
  2. CYCLOPHOSPHAMIDE. [Concomitant]
     Active Substance: CYCLOPHOSPHAMIDE
     Dosage: UNK, UNK
     Dates: start: 20140610
  3. DEXAMETHASONE. [Concomitant]
     Active Substance: DEXAMETHASONE
     Dosage: UNK, UNK
     Dates: start: 20140610
  4. METOKLOPRAMID [Concomitant]
     Dosage: 10 MG, UNK
     Route: 042
     Dates: start: 20140610
  5. THALIDOMIDE [Concomitant]
     Active Substance: THALIDOMIDE
     Dosage: UNK, UNK
     Dates: start: 20140610
  6. NADROPARIN [Concomitant]
     Active Substance: NADROPARIN
     Dosage: 0.4 ML, UNK
     Route: 058
     Dates: start: 20140603
  7. ONDANSETRONUM [Concomitant]
     Dosage: 8 MG, UNK
     Route: 042
     Dates: start: 20140610
  8. OMEPRAZOL                          /00661201/ [Concomitant]
     Active Substance: OMEPRAZOLE
     Dosage: 20 MG, UNK
     Route: 048
     Dates: start: 20140610
  9. OROCAL                             /00944201/ [Concomitant]
     Active Substance: CALCIUM CARBONATE
     Dosage: 1 UNK, UNK
     Route: 048
     Dates: start: 20140626

REACTIONS (1)
  - Gingivitis ulcerative [Recovered/Resolved]

NARRATIVE: CASE EVENT DATE: 20150127
